FAERS Safety Report 19753766 (Version 5)
Quarter: 2021Q4

REPORT INFORMATION
  Report Type: Spontaneous
  Country: US (occurrence: US)
  Receive Date: 20210827
  Receipt Date: 20211011
  Transmission Date: 20220303
  Serious: Yes (Disabling, Other)
  Sender: FDA-Public Use
  Company Number: NVSC2021US185631

PATIENT
  Age: 70 Year
  Sex: Male
  Weight: 99.79 kg

DRUGS (16)
  1. BEOVU [Suspect]
     Active Substance: BROLUCIZUMAB-DBLL
     Indication: Neovascular age-related macular degeneration
     Dosage: 10 UG, QMO
     Route: 047
     Dates: start: 20201014
  2. BEOVU [Suspect]
     Active Substance: BROLUCIZUMAB-DBLL
     Indication: Choroidal neovascularisation
     Dosage: 10 UG, QMO
     Route: 047
     Dates: start: 20201111, end: 20201111
  3. BEOVU [Suspect]
     Active Substance: BROLUCIZUMAB-DBLL
     Indication: Age-related macular degeneration
  4. AVASTIN [Concomitant]
     Active Substance: BEVACIZUMAB
     Indication: Macular degeneration
     Dosage: 1.25 MG (0.05 ML) (OS)
     Route: 031
     Dates: start: 20210428
  5. LISINOPRIL [Concomitant]
     Active Substance: LISINOPRIL
     Indication: Product used for unknown indication
     Dosage: 10 MG
     Route: 048
  6. MINERALS\VITAMINS [Concomitant]
     Active Substance: MINERALS\VITAMINS
     Indication: Product used for unknown indication
     Dosage: 1 DF, BID
     Route: 048
  7. ERYTHROMYCIN [Concomitant]
     Active Substance: ERYTHROMYCIN
     Indication: Product used for unknown indication
     Dosage: UNK, QHS (1/4 INCH)
     Route: 047
  8. EYE WASH /USA/ [Concomitant]
     Indication: Product used for unknown indication
     Dosage: UNK
     Route: 065
  9. TROPICAMIDE [Concomitant]
     Active Substance: TROPICAMIDE
     Indication: Product used for unknown indication
     Dosage: UNK
     Route: 065
  10. BETADINE [Concomitant]
     Active Substance: POVIDONE-IODINE
     Indication: Product used for unknown indication
     Dosage: UNK
     Route: 065
  11. EYLEA [Concomitant]
     Active Substance: AFLIBERCEPT
     Indication: Product used for unknown indication
     Dosage: 2 MG (0.05 ML) (OS)
     Route: 031
     Dates: start: 20210526
  12. EYLEA [Concomitant]
     Active Substance: AFLIBERCEPT
     Dosage: 2 MG (0.05 ML) (OS)
     Route: 031
     Dates: start: 20210623
  13. EYLEA [Concomitant]
     Active Substance: AFLIBERCEPT
     Dosage: 2 MG (0.05 ML) (OS)
     Route: 031
     Dates: start: 20210810
  14. PHENYLEPHRINE [Concomitant]
     Active Substance: PHENYLEPHRINE HYDROCHLORIDE
     Indication: Product used for unknown indication
     Dosage: UNK
     Route: 065
  15. TETRACAINE [Concomitant]
     Active Substance: TETRACAINE
     Indication: Product used for unknown indication
     Dosage: UNK
     Route: 065
  16. KETOROLAC [Concomitant]
     Active Substance: KETOROLAC TROMETHAMINE
     Indication: Product used for unknown indication
     Dosage: 1 DRP, QID (OS)
     Route: 047
     Dates: start: 20210419

REACTIONS (21)
  - Eye injury [Unknown]
  - Visual impairment [Unknown]
  - Subretinal fluid [Unknown]
  - Vitreous detachment [Unknown]
  - Detachment of retinal pigment epithelium [Unknown]
  - Blindness unilateral [Not Recovered/Not Resolved]
  - Feeling abnormal [Unknown]
  - Vitreous opacities [Unknown]
  - Metamorphopsia [Unknown]
  - Headache [Unknown]
  - Photopsia [Unknown]
  - Eye discharge [Unknown]
  - Retinal drusen [Unknown]
  - Eye swelling [Unknown]
  - Photophobia [Unknown]
  - Diplopia [Unknown]
  - Ocular hyperaemia [Unknown]
  - Vision blurred [Not Recovered/Not Resolved]
  - Eye pain [Unknown]
  - Vitreous floaters [Unknown]
  - Eye inflammation [Unknown]

NARRATIVE: CASE EVENT DATE: 20201114
